FAERS Safety Report 25183658 (Version 1)
Quarter: 2025Q2

REPORT INFORMATION
  Report Type: Spontaneous
  Country: GB (occurrence: GB)
  Receive Date: 20250410
  Receipt Date: 20250410
  Transmission Date: 20250717
  Serious: Yes (Disabling, Other)
  Sender: TEVA
  Company Number: None

PATIENT

DRUGS (10)
  1. INDAPAMIDE [Suspect]
     Active Substance: INDAPAMIDE
     Indication: Blood pressure measurement
     Route: 065
  2. AMLODIPINE [Concomitant]
     Active Substance: AMLODIPINE BESYLATE
     Indication: Product used for unknown indication
  3. LEVOTHYROXINE [Concomitant]
     Active Substance: LEVOTHYROXINE
     Indication: Product used for unknown indication
  4. LEVOTHYROXINE [Concomitant]
     Active Substance: LEVOTHYROXINE
     Indication: Product used for unknown indication
  5. CABERGOLINE [Concomitant]
     Active Substance: CABERGOLINE
     Indication: Product used for unknown indication
  6. OLMESARTAN [Concomitant]
     Active Substance: OLMESARTAN
     Indication: Blood pressure measurement
  7. OMNITROPE [Concomitant]
     Active Substance: SOMATROPIN
     Indication: Product used for unknown indication
  8. MOUNJARO [Suspect]
     Active Substance: TIRZEPATIDE
     Indication: Product used for unknown indication
     Route: 065
  9. TESTOSTERONE [Concomitant]
     Active Substance: TESTOSTERONE
     Indication: Product used for unknown indication
  10. JARDIANCE [Suspect]
     Active Substance: EMPAGLIFLOZIN
     Indication: Product used for unknown indication
     Dosage: JARDIANCE (EMPAGLIFLOZIN)
     Route: 065

REACTIONS (13)
  - Dehydration [Unknown]
  - Fluid imbalance [Unknown]
  - Headache [Unknown]
  - Orthostatic intolerance [Unknown]
  - Pollakiuria [Unknown]
  - Muscle fatigue [Unknown]
  - Blood pressure increased [Unknown]
  - Swelling face [Unknown]
  - Confusional state [Unknown]
  - Impaired quality of life [Unknown]
  - Memory impairment [Unknown]
  - Sensory disturbance [Unknown]
  - Cognitive disorder [Unknown]
